FAERS Safety Report 12871364 (Version 3)
Quarter: 2016Q4

REPORT INFORMATION
  Report Type: Spontaneous
  Country: GB (occurrence: GB)
  Receive Date: 20161020
  Receipt Date: 20161108
  Transmission Date: 20170207
  Serious: Yes (Other)
  Sender: FDA-Public Use
  Company Number: GB-009507513-1610GBR009641

PATIENT
  Age: 81 Year
  Sex: Female
  Weight: 73.47 kg

DRUGS (6)
  1. ALENDRONATE SODIUM. [Suspect]
     Active Substance: ALENDRONATE SODIUM
     Indication: OSTEOPOROSIS
     Dosage: 70 MG, QW
     Route: 048
     Dates: start: 20160927, end: 20161006
  2. ATENOLOL. [Concomitant]
     Active Substance: ATENOLOL
  3. DICLOFENAC [Concomitant]
     Active Substance: DICLOFENAC
  4. PERINDOPRIL [Concomitant]
     Active Substance: PERINDOPRIL
  5. ZAMADOL [Concomitant]
     Active Substance: TRAMADOL HYDROCHLORIDE
  6. SIMVASTATIN. [Concomitant]
     Active Substance: SIMVASTATIN
     Route: 048

REACTIONS (5)
  - Ocular hyperaemia [Not Recovered/Not Resolved]
  - Dysgeusia [Not Recovered/Not Resolved]
  - Arthralgia [Not Recovered/Not Resolved]
  - Dizziness [Not Recovered/Not Resolved]
  - Dyspepsia [Not Recovered/Not Resolved]

NARRATIVE: CASE EVENT DATE: 20160927
